FAERS Safety Report 8535443-8 (Version None)
Quarter: 2012Q3

REPORT INFORMATION
  Report Type: 
  Country: None (occurrence: None)
  Receive Date: 20120725
  Receipt Date: 20120713
  Transmission Date: 20120928
  Serious: Yes (Hospitalization)
  Sender: FDA-Public Use
  Company Number: US-BRISTOL-MYERS SQUIBB COMPANY-16743577

PATIENT
  Age: 65 Year
  Sex: Male
  Weight: 88 kg

DRUGS (1)
  1. ERBITUX [Suspect]
     Indication: LIP AND/OR ORAL CAVITY CANCER
     Dates: start: 20120626

REACTIONS (5)
  - STAPHYLOCOCCAL INFECTION [None]
  - ABNORMAL BEHAVIOUR [None]
  - AMNESIA [None]
  - AGGRESSION [None]
  - MALAISE [None]
